FAERS Safety Report 17637795 (Version 2)
Quarter: 2020Q2

REPORT INFORMATION
  Report Type: Spontaneous
  Country: CN (occurrence: CN)
  Receive Date: 20200407
  Receipt Date: 20200416
  Transmission Date: 20200713
  Serious: Yes (Other)
  Sender: FDA-Public Use
  Company Number: CN-ACCORD-178004

PATIENT
  Age: 48 Year
  Sex: Female

DRUGS (9)
  1. DOCETAXEL. [Suspect]
     Active Substance: DOCETAXEL
     Indication: KERATINISING SQUAMOUS CELL CARCINOMA OF NASOPHARYNX
     Dosage: ON THE FIRST DAY AT 75 MG/M2
     Route: 042
     Dates: start: 20171031
  2. CISPLATIN. [Suspect]
     Active Substance: CISPLATIN
     Indication: KERATINISING SQUAMOUS CELL CARCINOMA OF NASOPHARYNX
     Dosage: SECOND CYCLE
     Dates: start: 20171130
  3. DOCETAXEL. [Suspect]
     Active Substance: DOCETAXEL
     Indication: KERATINISING SQUAMOUS CELL CARCINOMA OF NASOPHARYNX
     Dosage: 3RD CYCLE
     Dates: start: 20171229
  4. DOCETAXEL. [Suspect]
     Active Substance: DOCETAXEL
     Indication: KERATINISING SQUAMOUS CELL CARCINOMA OF NASOPHARYNX
     Dosage: 2ND CYCLE
     Dates: start: 20171130
  5. CISPLATIN. [Suspect]
     Active Substance: CISPLATIN
     Indication: KERATINISING SQUAMOUS CELL CARCINOMA OF NASOPHARYNX
     Dosage: THIRD CYCLE
     Dates: start: 20171229
  6. CISPLATIN. [Suspect]
     Active Substance: CISPLATIN
     Indication: KERATINISING SQUAMOUS CELL CARCINOMA OF NASOPHARYNX
     Dosage: ON THE FIRST AND SECOND DAY AT 75 MG/M2
     Route: 042
     Dates: start: 20171031
  7. FLUOROURACIL. [Suspect]
     Active Substance: FLUOROURACIL
     Indication: KERATINISING SQUAMOUS CELL CARCINOMA OF NASOPHARYNX
     Dosage: 3RD CYCLE
     Dates: start: 20171229
  8. FLUOROURACIL. [Suspect]
     Active Substance: FLUOROURACIL
     Indication: KERATINISING SQUAMOUS CELL CARCINOMA OF NASOPHARYNX
     Dosage: 2ND CYCLE
     Dates: start: 20171130
  9. FLUOROURACIL. [Suspect]
     Active Substance: FLUOROURACIL
     Indication: KERATINISING SQUAMOUS CELL CARCINOMA OF NASOPHARYNX
     Dosage: FIRST DAY TO FIFTH DAY AT 500 MG/M2
     Route: 042
     Dates: start: 20171031

REACTIONS (2)
  - Optic ischaemic neuropathy [Recovering/Resolving]
  - Blindness [Recovering/Resolving]

NARRATIVE: CASE EVENT DATE: 2017
